FAERS Safety Report 23578724 (Version 1)
Quarter: 2024Q1

REPORT INFORMATION
  Report Type: Spontaneous
  Country: US (occurrence: US)
  Receive Date: 20240229
  Receipt Date: 20240229
  Transmission Date: 20240410
  Serious: Yes (Hospitalization, Other)
  Sender: FDA-Public Use
  Company Number: US-MLMSERVICE-20240212-4828586-1

PATIENT
  Age: 36 Year
  Sex: Male

DRUGS (1)
  1. LORAZEPAM [Suspect]
     Active Substance: LORAZEPAM
     Indication: Catatonia
     Dosage: UNK (DOSE INCREASED)
     Route: 065

REACTIONS (3)
  - Mental status changes [Unknown]
  - Fall [Unknown]
  - Proctitis [Unknown]
